FAERS Safety Report 8464620 (Version 2)
Quarter: 2013Q4

REPORT INFORMATION
  Report Type: Report from Study
  Country: KR (occurrence: KR)
  Receive Date: 20120319
  Receipt Date: 20131212
  Transmission Date: 20140711
  Serious: Yes (Death, Hospitalization)
  Sender: FDA-Public Use
  Company Number: KR-BAYER-2012-022581

PATIENT
  Age: 56 Year
  Sex: Female
  Weight: 58 kg

DRUGS (18)
  1. NEXAVAR [Suspect]
     Indication: HEPATOCELLULAR CARCINOMA
     Dosage: 400 MG, DAILY
     Route: 048
     Dates: start: 20120203, end: 20120209
  2. BARACLUDE [Concomitant]
     Indication: CHRONIC HEPATITIS B
     Dosage: 0.5 MG, DAILY
     Route: 048
     Dates: start: 20120131, end: 20120215
  3. DURAGESIC [Concomitant]
     Indication: ABDOMINAL PAIN
     Dosage: 2.1 MG, DAILY
     Dates: start: 20120209, end: 20120210
  4. DUPHALAC [LACTULOSE] [Concomitant]
     Indication: CONSTIPATION
     Dosage: 300 ML, DAILY
     Route: 048
     Dates: start: 20120214, end: 20120214
  5. OXYCODONE HYDROCHLORIDE [Concomitant]
     Indication: ABDOMINAL PAIN
     Dosage: 5 MG, DAILY
     Route: 048
     Dates: start: 20120211, end: 20120211
  6. ULTRACET [Concomitant]
     Indication: ABDOMINAL PAIN
     Dosage: 2 DF DAILY
     Route: 048
     Dates: start: 20120209, end: 20120212
  7. PERIDOL [Concomitant]
     Indication: ABDOMINAL PAIN
     Dosage: 5 MG DAILY
     Route: 042
     Dates: start: 20120212, end: 20120214
  8. ATIVAN [Concomitant]
     Indication: ABDOMINAL PAIN
     Dosage: 2 MG, DAILY
     Route: 042
     Dates: start: 20120214, end: 20120214
  9. TARGIN [Concomitant]
     Indication: ABDOMINAL PAIN
     Dosage: 10 / 5MG DAILY
     Route: 048
     Dates: start: 20120210, end: 20120212
  10. PHENIRAMIN [Concomitant]
     Indication: PREMEDICATION
     Dosage: 4 MG DAILY
     Route: 042
     Dates: start: 20120214, end: 20120214
  11. CEFOTAXIME [Concomitant]
     Indication: PYREXIA
     Dosage: 1 G, DAILY
     Route: 042
     Dates: start: 20120213, end: 20120214
  12. CEFOTAXIME [Concomitant]
     Indication: PYREXIA
     Dosage: 2 G DAILY
     Route: 042
     Dates: start: 20120214, end: 20120216
  13. DICLOFENAC [Concomitant]
     Indication: PYREXIA
     Dosage: 90 MG DAILY
     Route: 042
     Dates: start: 20120214, end: 20120214
  14. INVANZ [Concomitant]
     Indication: PYREXIA
     Dosage: 1 G DAILY
     Route: 042
     Dates: start: 20120215, end: 20120216
  15. METOCLOPRAMIDE [Concomitant]
     Indication: NAUSEA
     Dosage: 10 MG DAILY
     Route: 042
     Dates: start: 20120210, end: 20120213
  16. NOREPINEPHRINE BITARTRATE [Concomitant]
     Indication: HYPOTENSION
     Dosage: 20 MG DAILY
     Route: 042
     Dates: start: 20120215, end: 20120215
  17. NALOXONE [Concomitant]
     Indication: CONFUSIONAL STATE
     Dosage: 2 MG DAILY
     Route: 042
     Dates: start: 20120211, end: 20120212
  18. PROPACETAMOL HYDROCHLORIDE [Concomitant]
     Indication: PYREXIA
     Dosage: 1 G DAILY
     Route: 042
     Dates: start: 20120211, end: 20120216

REACTIONS (2)
  - Asthenia [Fatal]
  - Acute hepatic failure [Fatal]
